FAERS Safety Report 20479699 (Version 1)
Quarter: 2022Q1

REPORT INFORMATION
  Report Type: Spontaneous
  Country: JP (occurrence: JP)
  Receive Date: 20220216
  Receipt Date: 20220216
  Transmission Date: 20220424
  Serious: Yes (Hospitalization, Other)
  Sender: FDA-Public Use
  Company Number: JP-BRISTOL-MYERS SQUIBB COMPANY-BMS-2022-022240

PATIENT
  Age: 82 Year
  Sex: Male
  Weight: 45 kg

DRUGS (2)
  1. NIVOLUMAB [Suspect]
     Active Substance: NIVOLUMAB
     Indication: Gastric cancer stage IV
     Dosage: 240 MILLIGRAM, Q4WK
     Route: 065
     Dates: start: 201810
  2. MOXIFLOXACIN [Concomitant]
     Active Substance: MOXIFLOXACIN
     Indication: Pneumonia bacterial
     Dosage: 400 MG/DAY FOR 7 DAYS
     Route: 048

REACTIONS (3)
  - Mycobacterium avium complex infection [Recovering/Resolving]
  - Pneumonia bacterial [Recovering/Resolving]
  - Prescribed underdose [Unknown]
